FAERS Safety Report 9426520 (Version 3)
Quarter: 2014Q1

REPORT INFORMATION
  Report Type: Spontaneous
  Country: CH (occurrence: CH)
  Receive Date: 20130730
  Receipt Date: 20140212
  Transmission Date: 20141002
  Serious: Yes (Hospitalization, Other)
  Sender: FDA-Public Use
  Company Number: CH-RANBAXY-2013RR-71608

PATIENT
  Age: 62 Year
  Sex: Male

DRUGS (3)
  1. ACENOCOUMAROL [Suspect]
     Indication: ATRIAL FIBRILLATION
     Dosage: 2 MG/DAY
     Route: 048
  2. ACENOCOUMAROL [Interacting]
     Indication: PULMONARY EMBOLISM
  3. AMOXICILLIN/CLAVULANIC ACID [Interacting]
     Indication: DERMO-HYPODERMITIS
     Dosage: UNK
     Route: 065

REACTIONS (5)
  - Haemorrhage [Unknown]
  - Anaemia [Recovered/Resolved]
  - Hemiparesis [Recovered/Resolved]
  - Drug interaction [Unknown]
  - Oesophageal varices haemorrhage [Unknown]
